FAERS Safety Report 8147428-4 (Version None)
Quarter: 2012Q1

REPORT INFORMATION
  Report Type: 
  Country: None (occurrence: None)
  Receive Date: 20120218
  Receipt Date: 20110302
  Transmission Date: 20120608
  Serious: No
  Sender: FDA-Public Use
  Company Number: US-ALLERGAN-1101781US

PATIENT
  Age: 78 Year
  Sex: Female
  Weight: 70.295 kg

DRUGS (8)
  1. LIPITOR [Concomitant]
     Indication: HYPERCHOLESTEROLAEMIA
     Dosage: UNK
  2. DIAZEPAM [Concomitant]
     Indication: ANXIETY
     Dosage: UNK
  3. BENICAR [Suspect]
     Indication: BLADDER DISORDER
     Dosage: UNK
  4. METFORMIN HCL [Concomitant]
     Indication: DIABETES MELLITUS
     Dosage: UNK
  5. BOTULINUM TOXIN TYPE A [Suspect]
     Indication: BLEPHAROSPASM
     Dosage: 100 UNITS, SINGLE
     Route: 030
     Dates: start: 20101201, end: 20101201
  6. IMIPRAMINE [Concomitant]
     Indication: CYSTITIS INTERSTITIAL
     Dosage: 10 MG, QD
  7. BLOOD PRESSURE MEDICATION NOS [Concomitant]
     Indication: BLOOD PRESSURE
     Dosage: UNK
  8. NEXIUM [Concomitant]
     Indication: GASTROOESOPHAGEAL REFLUX DISEASE
     Dosage: UNK

REACTIONS (11)
  - GAIT DISTURBANCE [None]
  - SPEECH DISORDER [None]
  - EYELID PTOSIS [None]
  - HEART RATE INCREASED [None]
  - URINARY INCONTINENCE [None]
  - SKIN WRINKLING [None]
  - VIITH NERVE PARALYSIS [None]
  - SWELLING FACE [None]
  - MUSCULAR WEAKNESS [None]
  - DYSPHONIA [None]
  - PHOTOPHOBIA [None]
